FAERS Safety Report 12879382 (Version 1)
Quarter: 2016Q4

REPORT INFORMATION
  Report Type: Spontaneous
  Country: US (occurrence: US)
  Receive Date: 20161025
  Receipt Date: 20161025
  Transmission Date: 20170207
  Serious: Yes (Hospitalization)
  Sender: FDA-Public Use
  Company Number: US-JNJCP-30000359491

PATIENT
  Sex: Female
  Weight: 16 kg

DRUGS (2)
  1. AVEENO BABY CALMING COMFORT [Suspect]
     Active Substance: DIMETHICONE
     Indication: DRY SKIN PROPHYLAXIS
     Dosage: ONE CAP FULL, ONCE A DAY
     Route: 061
  2. AVEENO BABY CALMING COMFORT [Suspect]
     Active Substance: DIMETHICONE
     Indication: REMOVAL OF INERT MATTER FROM SKIN OR SUBCUTANEOUS TISSUE
     Dosage: TWO CAP FULL, ONCE DAILY
     Route: 061
     Dates: end: 20160916

REACTIONS (1)
  - Asthma [Recovering/Resolving]

NARRATIVE: CASE EVENT DATE: 20160915
